FAERS Safety Report 12180217 (Version 1)
Quarter: 2016Q1

REPORT INFORMATION
  Report Type: Spontaneous
  Country: US (occurrence: None)
  Receive Date: 20160314
  Receipt Date: 20160314
  Transmission Date: 20160526
  Serious: No
  Sender: FDA-Public Use
  Company Number: None

PATIENT
  Age: 31 Month
  Sex: Male
  Weight: 15.42 kg

DRUGS (1)
  1. MIRALAX [Suspect]
     Active Substance: POLYETHYLENE GLYCOL 3350
     Indication: CONSTIPATION
     Dosage: TWICE DAILY, TAKEN BY MOUTH
     Route: 048
     Dates: start: 20150506, end: 20150810

REACTIONS (6)
  - Feeding disorder [None]
  - Tic [None]
  - Aggression [None]
  - Dark circles under eyes [None]
  - Fatigue [None]
  - Nervousness [None]

NARRATIVE: CASE EVENT DATE: 20150701
